FAERS Safety Report 5068045-9 (Version None)
Quarter: 2006Q3

REPORT INFORMATION
  Report Type: 
  Country: None (occurrence: None)
  Receive Date: 20060731
  Receipt Date: 20060721
  Transmission Date: 20061208
  Serious: Yes (Other)
  Sender: FDA-Public Use
  Company Number: 2006090715

PATIENT
  Age: 63 Year
  Sex: Male

DRUGS (1)
  1. DEPO-TESTOSTERONE [Suspect]
     Indication: DRUG USE FOR UNKNOWN INDICATION

REACTIONS (3)
  - PITUITARY TUMOUR BENIGN [None]
  - PITUITARY TUMOUR RECURRENT [None]
  - PROSTATE CANCER [None]
